FAERS Safety Report 5137443-7 (Version None)
Quarter: 2006Q4

REPORT INFORMATION
  Report Type: 
  Country: None (occurrence: None)
  Receive Date: 20061030
  Receipt Date: 20051104
  Transmission Date: 20070319
  Serious: No
  Sender: FDA-Public Use
  Company Number: US-GLAXOSMITHKLINE-A0580899A

PATIENT
  Sex: Female

DRUGS (8)
  1. ADVAIR HFA [Suspect]
     Indication: DRUG USE FOR UNKNOWN INDICATION
     Dosage: 1PUFF TWICE PER DAY
     Route: 055
  2. AVANDIA [Concomitant]
  3. AVAPRO [Concomitant]
  4. UNKNOWN MEDICATION [Concomitant]
  5. PRAZOSIN HCL [Concomitant]
  6. PREMPRO [Concomitant]
  7. PRILOSEC [Concomitant]
  8. FLUOXETINE [Concomitant]

REACTIONS (1)
  - PEAK EXPIRATORY FLOW RATE DECREASED [None]
